FAERS Safety Report 18395530 (Version 1)
Quarter: 2020Q4

REPORT INFORMATION
  Report Type: Other
  Country: ES (occurrence: ES)
  Receive Date: 20201017
  Receipt Date: 20201017
  Transmission Date: 20210114
  Serious: Yes (Life-Threatening, Hospitalization, Other)
  Sender: FDA-Public Use
  Company Number: ES-INNOGENIX, LLC-2092888

PATIENT
  Age: 70 Year
  Sex: Male

DRUGS (2)
  1. CIPROFLOXACIN. [Concomitant]
     Active Substance: CIPROFLOXACIN
     Route: 065
     Dates: start: 2020, end: 2020
  2. METRONIDAZOLE. [Suspect]
     Active Substance: METRONIDAZOLE
     Indication: OSTEOMYELITIS
     Route: 065
     Dates: start: 2020, end: 2020

REACTIONS (6)
  - Disorientation [Recovered/Resolved]
  - Mucosal dryness [Recovered/Resolved]
  - Dysarthria [Recovered/Resolved]
  - Feeling abnormal [Recovered/Resolved]
  - Neurotoxicity [Recovered/Resolved]
  - Dysmetria [Recovered/Resolved]

NARRATIVE: CASE EVENT DATE: 2020
